FAERS Safety Report 4627257-6 (Version None)
Quarter: 2005Q1

REPORT INFORMATION
  Report Type: 
  Country: None (occurrence: None)
  Receive Date: 20050331
  Receipt Date: 20050315
  Transmission Date: 20050727
  Serious: Yes (Death, Hospitalization, Other)
  Sender: FDA-Public Use
  Company Number: A-US2005-09186

PATIENT
  Age: 58 Year
  Sex: Female

DRUGS (10)
  1. TRACLEER [Suspect]
     Indication: PULMONARY HYPERTENSION
     Dosage: 250 MG, BID ORAL; 62.5 MG, BID, ORAL; 125 MG, BID, ORAL
     Route: 048
  2. FUROSEMIDE [Concomitant]
  3. INDOMETHACIN [Concomitant]
  4. RANITIDINE [Concomitant]
  5. CLARITHROMYCIN [Concomitant]
  6. ESTROGEN (ESTROGEN NOS) [Concomitant]
  7. LEVOTHYROXINE SODIUM [Concomitant]
  8. RISEDRONIC ACID (RISEDRONIC ACID) [Concomitant]
  9. LORAZEPAM [Concomitant]
  10. NITROGLYCERIN [Concomitant]

REACTIONS (6)
  - ALANINE AMINOTRANSFERASE INCREASED [None]
  - ASPARTATE AMINOTRANSFERASE INCREASED [None]
  - DYSPNOEA [None]
  - HEPATIC CIRRHOSIS [None]
  - LIVER FUNCTION TEST ABNORMAL [None]
  - PULMONARY HYPERTENSION [None]
